FAERS Safety Report 8948867 (Version 2)
Quarter: 2012Q4

REPORT INFORMATION
  Report Type: 
  Country: US (occurrence: US)
  Receive Date: 20121121
  Receipt Date: 20121212
  Transmission Date: 20130627
  Serious: Yes (Death)
  Sender: FDA-Public Use
  Company Number: US-ASTELLAS-1118865

PATIENT
  Sex: Female

DRUGS (5)
  1. TARCEVA [Suspect]
     Indication: LUNG NEOPLASM MALIGNANT
     Route: 065
  2. TARCEVA [Suspect]
     Indication: PULMONARY EMBOLISM
  3. TARCEVA [Suspect]
     Indication: PULMONARY INFARCTION
  4. TARCEVA [Suspect]
     Indication: HAEMORRHAGIC INFARCTION
  5. TARCEVA [Suspect]
     Indication: THROMBOSIS

REACTIONS (2)
  - Death [Fatal]
  - Disease progression [Unknown]
